FAERS Safety Report 12684481 (Version 2)
Quarter: 2016Q4

REPORT INFORMATION
  Report Type: Spontaneous
  Country: FR (occurrence: FR)
  Receive Date: 20160825
  Receipt Date: 20161018
  Transmission Date: 20170207
  Serious: Yes (Hospitalization)
  Sender: FDA-Public Use
  Company Number: FR-JNJFOC-20160818723

PATIENT
  Age: 67 Year
  Sex: Female

DRUGS (3)
  1. XARELTO [Suspect]
     Active Substance: RIVAROXABAN
     Indication: ATRIAL FIBRILLATION
     Route: 048
     Dates: end: 20160802
  2. LASILIX [Concomitant]
     Active Substance: FUROSEMIDE
     Indication: ACUTE PULMONARY OEDEMA
     Route: 065
  3. XARELTO [Suspect]
     Active Substance: RIVAROXABAN
     Indication: CEREBROVASCULAR ACCIDENT PROPHYLAXIS
     Route: 048
     Dates: end: 20160802

REACTIONS (2)
  - Iron deficiency anaemia [Unknown]
  - Anticoagulation drug level increased [Recovering/Resolving]

NARRATIVE: CASE EVENT DATE: 20160802
